FAERS Safety Report 9404644 (Version 1)
Quarter: 2013Q3

REPORT INFORMATION
  Report Type: Spontaneous
  Country: IE (occurrence: IE)
  Receive Date: 20130717
  Receipt Date: 20130717
  Transmission Date: 20140515
  Serious: Yes (Hospitalization, Other)
  Sender: FDA-Public Use
  Company Number: PHFR2012IE005821

PATIENT
  Age: 53 Year
  Sex: Female

DRUGS (6)
  1. CLOZARIL [Suspect]
     Indication: SCHIZOPHRENIA
     Dosage: UNK UKN, UNK
     Route: 048
     Dates: start: 20091020
  2. CLOZARIL [Suspect]
     Dosage: 175 MG, NOCTE
     Route: 048
     Dates: end: 20121106
  3. AUGMENTIN                               /UNK/ [Concomitant]
     Indication: SEPSIS
     Dosage: 1.2 G, TID
     Route: 042
     Dates: start: 20121031, end: 20121105
  4. CLEXANE [Concomitant]
     Dosage: 40 MG, UNK
     Route: 058
     Dates: start: 20121031, end: 20121108
  5. MYCOSTATIN [Concomitant]
     Dosage: 1 ML, QID
     Route: 048
     Dates: start: 20121102, end: 20121109
  6. SODIUM VALPROATE [Concomitant]
     Indication: EPILEPSY
     Dosage: 600 MG, BID
     Route: 048
     Dates: start: 20121105

REACTIONS (5)
  - Diabetic ketoacidosis [Recovered/Resolved]
  - Mental disorder [Unknown]
  - Neutropenia [Recovering/Resolving]
  - Neutrophil count decreased [Recovered/Resolved]
  - White blood cell count decreased [Recovered/Resolved]
